FAERS Safety Report 8615620-8 (Version None)
Quarter: 2012Q3

REPORT INFORMATION
  Report Type: 
  Country: None (occurrence: None)
  Receive Date: 20120823
  Receipt Date: 20120809
  Transmission Date: 20120928
  Serious: Yes (Other)
  Sender: FDA-Public Use
  Company Number: IT-MYLANLABS-2012S1017378

PATIENT
  Age: 81 Year
  Sex: Male

DRUGS (5)
  1. ENALAPRIL MALEATE [Suspect]
     Indication: CARDIAC FAILURE
     Route: 048
     Dates: start: 20120101, end: 20120712
  2. ACETYLSALICYLIC ACID SRT [Concomitant]
     Indication: CARDIAC FAILURE
     Dates: start: 20120101, end: 20120712
  3. CALCITRIOL [Concomitant]
     Indication: CARDIAC FAILURE
     Dates: start: 20120101, end: 20120712
  4. SPIRONOLACTONE [Suspect]
     Indication: CARDIAC FAILURE
     Route: 048
     Dates: start: 20120101, end: 20120712
  5. FUROSEMIDE [Concomitant]
     Indication: CARDIAC FAILURE
     Dates: start: 20120101, end: 20120712

REACTIONS (2)
  - PAIN [None]
  - HYPERKALAEMIA [None]
